FAERS Safety Report 7015417-9 (Version None)
Quarter: 2010Q3

REPORT INFORMATION
  Report Type: 
  Country: None (occurrence: None)
  Receive Date: 20100927
  Receipt Date: 20100920
  Transmission Date: 20110219
  Serious: Yes (Death)
  Sender: FDA-Public Use
  Company Number: PHHY2010MX26299

PATIENT
  Sex: Female

DRUGS (1)
  1. ZOMETA [Suspect]
     Indication: NEOPLASM MALIGNANT
     Dosage: 4 MG, QMO
     Route: 042
     Dates: start: 20070901

REACTIONS (5)
  - ANAEMIA [None]
  - BLOOD POTASSIUM DECREASED [None]
  - DEPRESSION [None]
  - EATING DISORDER [None]
  - MALIGNANT NEOPLASM PROGRESSION [None]
